FAERS Safety Report 23117084 (Version 1)
Quarter: 2023Q4

REPORT INFORMATION
  Report Type: Spontaneous
  Country: US (occurrence: US)
  Receive Date: 20231027
  Receipt Date: 20231027
  Transmission Date: 20240110
  Serious: No
  Sender: FDA-Public Use
  Company Number: US-BAYER-2023A153231

PATIENT

DRUGS (1)
  1. VITRAKVI [Suspect]
     Active Substance: LAROTRECTINIB
     Dosage: UNK
     Dates: end: 20230901

REACTIONS (1)
  - Expired product administered [None]

NARRATIVE: CASE EVENT DATE: 20230901
